FAERS Safety Report 4680442-X (Version None)
Quarter: 2005Q2

REPORT INFORMATION
  Report Type: 
  Country: None (occurrence: None)
  Receive Date: 20050601
  Receipt Date: 20050513
  Transmission Date: 20051028
  Serious: Yes (Death, Hospitalization)
  Sender: FDA-Public Use
  Company Number: US_0505117673

PATIENT
  Age: 52 Year
  Sex: Female

DRUGS (3)
  1. XIGRIS [Suspect]
     Indication: SEPSIS
     Dosage: 24 UG/KG/HR
  2. ANTIBIOTICS [Concomitant]
  3. IMUNOSUPRESSIVE DRUGS [Concomitant]

REACTIONS (4)
  - GASTROINTESTINAL HAEMORRHAGE [None]
  - HAEMORRHAGE INTRACRANIAL [None]
  - NEUROLOGICAL SYMPTOM [None]
  - PERITONEAL HAEMORRHAGE [None]
